FAERS Safety Report 17674031 (Version 2)
Quarter: 2020Q2

REPORT INFORMATION
  Report Type: Report from Study
  Country: None (occurrence: US)
  Receive Date: 20200415
  Receipt Date: 20200429
  Transmission Date: 20200714
  Serious: Yes (Hospitalization, Other)
  Sender: FDA-Public Use
  Company Number: US-ABBVIE-20K-163-3364671-00

PATIENT
  Age: 70 Year
  Sex: Female

DRUGS (2)
  1. VENCLEXTA [Suspect]
     Active Substance: VENETOCLAX
     Indication: ACUTE MYELOID LEUKAEMIA
     Route: 048
     Dates: start: 20200331, end: 2020
  2. VENCLEXTA [Suspect]
     Active Substance: VENETOCLAX
     Route: 048
     Dates: start: 202004, end: 202004

REACTIONS (6)
  - Body temperature abnormal [Unknown]
  - Arthralgia [Unknown]
  - Terminal state [Not Recovered/Not Resolved]
  - Hospice care [Not Recovered/Not Resolved]
  - Hospitalisation [Unknown]
  - Gait inability [Unknown]

NARRATIVE: CASE EVENT DATE: 2020
